FAERS Safety Report 9189856 (Version 1)
Quarter: 2013Q1

REPORT INFORMATION
  Report Type: Spontaneous
  Country: US (occurrence: None)
  Receive Date: 20120703
  Receipt Date: 20120703
  Transmission Date: 20140127
  Serious: No
  Sender: FDA-Public Use
  Company Number: PHEH2012US009466

PATIENT
  Age: 21 Year
  Sex: Female

DRUGS (2)
  1. GILENYA (FTY) CAPSULE, 0.5MG [Suspect]
     Route: 048
     Dates: start: 20120227
  2. FIORICET (BUTALBITAL, CAFFEINE, PARACETAMOL) TABLET [Concomitant]

REACTIONS (4)
  - Headache [None]
  - Kidney infection [None]
  - Bronchitis [None]
  - Muscle spasms [None]
